FAERS Safety Report 7276941-7 (Version None)
Quarter: 2011Q1

REPORT INFORMATION
  Report Type: 
  Country: None (occurrence: None)
  Receive Date: 20110207
  Receipt Date: 20110121
  Transmission Date: 20110831
  Serious: No
  Sender: FDA-Public Use
  Company Number: US-BIOGENIDEC-2011BI003487

PATIENT
  Sex: Female

DRUGS (1)
  1. TYSABRI [Suspect]
     Indication: MULTIPLE SCLEROSIS
     Route: 042
     Dates: start: 20090714

REACTIONS (9)
  - NERVOUSNESS [None]
  - HAEMOGLOBIN DECREASED [None]
  - FATIGUE [None]
  - ARTHRITIS [None]
  - ASTHENIA [None]
  - MALAISE [None]
  - ANXIETY [None]
  - GAIT DISTURBANCE [None]
  - MEMORY IMPAIRMENT [None]
